FAERS Safety Report 23478059 (Version 1)
Quarter: 2024Q1

REPORT INFORMATION
  Report Type: Spontaneous
  Country: US (occurrence: US)
  Receive Date: 20240204
  Receipt Date: 20240204
  Transmission Date: 20240410
  Serious: Yes (Other)
  Sender: FDA-Public Use
  Company Number: US-STRIDES ARCOLAB LIMITED-2023SP015298

PATIENT
  Age: 14 Year
  Sex: Male

DRUGS (5)
  1. MELATONIN [Suspect]
     Active Substance: MELATONIN
     Indication: Agitation
     Dosage: UNK
     Route: 065
  2. FLUOXETINE HYDROCHLORIDE [Suspect]
     Active Substance: FLUOXETINE HYDROCHLORIDE
     Indication: Agitation
     Dosage: UNK
     Route: 065
  3. FLUOXETINE HYDROCHLORIDE [Suspect]
     Active Substance: FLUOXETINE HYDROCHLORIDE
     Indication: Mood swings
  4. SERTRALINE [Suspect]
     Active Substance: SERTRALINE HYDROCHLORIDE
     Indication: Agitation
     Dosage: UNK
     Route: 065
  5. SERTRALINE [Suspect]
     Active Substance: SERTRALINE HYDROCHLORIDE
     Indication: Mood swings

REACTIONS (2)
  - Treatment failure [Unknown]
  - Off label use [Unknown]
